FAERS Safety Report 16292170 (Version 1)
Quarter: 2019Q2

REPORT INFORMATION
  Report Type: Spontaneous
  Country: US (occurrence: US)
  Receive Date: 20190509
  Receipt Date: 20190509
  Transmission Date: 20190711
  Serious: No
  Sender: FDA-Public Use
  Company Number: US-ALLERGAN-1905935US

PATIENT
  Age: 46 Year
  Sex: Female
  Weight: 74.83 kg

DRUGS (2)
  1. CELEBREX [Concomitant]
     Active Substance: CELECOXIB
     Indication: SCLERITIS
     Dosage: 200 MG, BID
     Route: 048
     Dates: start: 2017
  2. FML FORTE [Suspect]
     Active Substance: FLUOROMETHOLONE
     Indication: SCLERITIS
     Dosage: 1 GTT, BID
     Route: 047
     Dates: start: 2017

REACTIONS (5)
  - Eye pain [Recovered/Resolved]
  - Product dose omission [Unknown]
  - Condition aggravated [Recovered/Resolved]
  - Eye irritation [Recovered/Resolved]
  - Eye infection [Unknown]

NARRATIVE: CASE EVENT DATE: 201902
